FAERS Safety Report 20191739 (Version 1)
Quarter: 2021Q4

REPORT INFORMATION
  Report Type: Report from Study
  Country: BR (occurrence: BR)
  Receive Date: 20211216
  Receipt Date: 20211216
  Transmission Date: 20220303
  Serious: Yes (Other)
  Sender: FDA-Public Use
  Company Number: BR-NOVARTISPH-NVSC2020BR338166

PATIENT
  Age: 47 Year
  Sex: Female

DRUGS (5)
  1. COSENTYX [Suspect]
     Active Substance: SECUKINUMAB
     Indication: Psoriatic arthropathy
     Dosage: 300 MG, 2 PENS (5 WEEKLY + MONTHLY APPLICATIONS)
     Route: 065
     Dates: start: 20200908
  2. COSENTYX [Suspect]
     Active Substance: SECUKINUMAB
     Dosage: 300 MG, UNKNOWN
     Route: 065
     Dates: start: 202009
  3. COSENTYX [Suspect]
     Active Substance: SECUKINUMAB
     Dosage: 300 MG, UNKNOWN
     Route: 065
  4. COSENTYX [Suspect]
     Active Substance: SECUKINUMAB
     Dosage: UNK
     Route: 065
     Dates: start: 20211106
  5. LEFLUNOMIDE [Concomitant]
     Active Substance: LEFLUNOMIDE
     Indication: Product used for unknown indication
     Dosage: 20 MG, STARTED FOR MORE THAN 5 YEARS
     Route: 065

REACTIONS (33)
  - Respiratory distress [Recovering/Resolving]
  - Myelitis transverse [Recovering/Resolving]
  - Wound [Recovered/Resolved]
  - Weight increased [Unknown]
  - Gait disturbance [Unknown]
  - Skin fissures [Recovering/Resolving]
  - Wound [Recovering/Resolving]
  - Limb injury [Not Recovered/Not Resolved]
  - Psoriasis [Recovering/Resolving]
  - Plantar fasciitis [Unknown]
  - Arthritis [Recovering/Resolving]
  - Hypertension [Unknown]
  - Malaise [Unknown]
  - Headache [Unknown]
  - Illness [Unknown]
  - Abdominal discomfort [Recovering/Resolving]
  - Pain [Recovering/Resolving]
  - Somnolence [Recovering/Resolving]
  - Dyspnoea [Recovering/Resolving]
  - Spinal disorder [Recovering/Resolving]
  - Musculoskeletal chest pain [Recovered/Resolved]
  - Dizziness [Recovering/Resolving]
  - Hyperhidrosis [Recovering/Resolving]
  - Feeling abnormal [Recovering/Resolving]
  - Dysstasia [Recovering/Resolving]
  - Bone disorder [Recovering/Resolving]
  - Osteoarthritis [Recovering/Resolving]
  - Heat exhaustion [Recovering/Resolving]
  - Impaired healing [Recovering/Resolving]
  - Fatigue [Unknown]
  - Back pain [Recovering/Resolving]
  - Pruritus [Recovering/Resolving]
  - Therapeutic product effect incomplete [Recovering/Resolving]

NARRATIVE: CASE EVENT DATE: 20200908
